FAERS Safety Report 24614917 (Version 2)
Quarter: 2025Q3

REPORT INFORMATION
  Report Type: Spontaneous
  Country: CN (occurrence: CN)
  Receive Date: 20241113
  Receipt Date: 20250809
  Transmission Date: 20251021
  Serious: Yes (Hospitalization, Disabling, Other)
  Sender: ALEXION PHARMACEUTICALS
  Company Number: CN-ASTRAZENECA-202411CHN003397CN

PATIENT
  Age: 58 Year
  Sex: Male
  Weight: 81 kg

DRUGS (3)
  1. DAPAGLIFLOZIN [Suspect]
     Active Substance: DAPAGLIFLOZIN
     Indication: Type 2 diabetes mellitus
     Dosage: 10 MILLIGRAM, QD
     Dates: start: 20240925, end: 20241008
  2. ROSUVASTATIN CALCIUM [Concomitant]
     Active Substance: ROSUVASTATIN CALCIUM
     Indication: Lipids decreased
     Dosage: 10 MILLIGRAM, QD
     Dates: start: 20240827, end: 20240926
  3. GLUCOBAY [Concomitant]
     Active Substance: ACARBOSE
     Indication: Type 2 diabetes mellitus
     Dosage: 100 MILLIGRAM, TID
     Dates: start: 20240925, end: 20241008

REACTIONS (3)
  - Alanine aminotransferase increased [Recovered/Resolved]
  - Liver injury [Unknown]
  - Aspartate aminotransferase increased [Recovered/Resolved]
